FAERS Safety Report 23951730 (Version 6)
Quarter: 2025Q2

REPORT INFORMATION
  Report Type: Spontaneous
  Country: CA (occurrence: CA)
  Receive Date: 20240607
  Receipt Date: 20250630
  Transmission Date: 20250716
  Serious: Yes (Death, Life-Threatening, Hospitalization, Disabling, Other)
  Sender: SANDOZ
  Company Number: CA-SANDOZ-SDZ2024CA055484

PATIENT
  Age: 43 Year
  Sex: Female
  Weight: 68 kg

DRUGS (322)
  1. ALENDRONIC ACID [Suspect]
     Active Substance: ALENDRONIC ACID
     Indication: Rheumatoid arthritis
     Route: 065
  2. ALENDRONIC ACID [Suspect]
     Active Substance: ALENDRONIC ACID
     Route: 048
  3. ALENDRONIC ACID [Suspect]
     Active Substance: ALENDRONIC ACID
     Route: 065
  4. ANAKINRA [Suspect]
     Active Substance: ANAKINRA
     Indication: Product used for unknown indication
     Route: 048
  5. ANAKINRA [Suspect]
     Active Substance: ANAKINRA
     Route: 065
  6. ANAKINRA [Suspect]
     Active Substance: ANAKINRA
     Route: 065
  7. ANAKINRA [Suspect]
     Active Substance: ANAKINRA
     Route: 065
  8. ANAKINRA [Suspect]
     Active Substance: ANAKINRA
     Route: 048
  9. ANAKINRA [Suspect]
     Active Substance: ANAKINRA
     Route: 065
  10. ANAKINRA [Suspect]
     Active Substance: ANAKINRA
     Route: 065
  11. ANAKINRA [Suspect]
     Active Substance: ANAKINRA
     Route: 065
  12. ANAKINRA [Suspect]
     Active Substance: ANAKINRA
     Route: 065
  13. ANAKINRA [Suspect]
     Active Substance: ANAKINRA
     Route: 065
  14. ANAKINRA [Suspect]
     Active Substance: ANAKINRA
     Route: 065
  15. LEFLUNOMIDE [Suspect]
     Active Substance: LEFLUNOMIDE
     Dosage: 20 MG, QD
     Route: 065
  16. LEFLUNOMIDE [Suspect]
     Active Substance: LEFLUNOMIDE
     Indication: Rheumatoid arthritis
     Route: 065
  17. LEFLUNOMIDE [Suspect]
     Active Substance: LEFLUNOMIDE
     Route: 065
  18. LEFLUNOMIDE [Suspect]
     Active Substance: LEFLUNOMIDE
     Route: 065
  19. LEFLUNOMIDE [Suspect]
     Active Substance: LEFLUNOMIDE
     Route: 065
  20. LEFLUNOMIDE [Suspect]
     Active Substance: LEFLUNOMIDE
     Route: 065
  21. CETIRIZINE [Suspect]
     Active Substance: CETIRIZINE HYDROCHLORIDE
     Dosage: 10 MG, QD
     Route: 048
  22. CETIRIZINE [Suspect]
     Active Substance: CETIRIZINE HYDROCHLORIDE
     Dosage: 10 MG, QD
     Route: 048
  23. CETIRIZINE [Suspect]
     Active Substance: CETIRIZINE HYDROCHLORIDE
     Dosage: 10 MG, QD
     Route: 065
  24. CETIRIZINE [Suspect]
     Active Substance: CETIRIZINE HYDROCHLORIDE
     Dosage: 10 MG, QD
     Route: 065
  25. CETIRIZINE [Suspect]
     Active Substance: CETIRIZINE HYDROCHLORIDE
     Route: 048
  26. CETIRIZINE [Suspect]
     Active Substance: CETIRIZINE HYDROCHLORIDE
     Route: 065
  27. CETIRIZINE [Suspect]
     Active Substance: CETIRIZINE HYDROCHLORIDE
     Route: 065
  28. CETIRIZINE [Suspect]
     Active Substance: CETIRIZINE HYDROCHLORIDE
     Dosage: 20 MG
     Route: 065
  29. CETIRIZINE [Suspect]
     Active Substance: CETIRIZINE HYDROCHLORIDE
     Indication: Product used for unknown indication
     Dosage: 20 MG, QD
     Route: 048
  30. CETIRIZINE [Suspect]
     Active Substance: CETIRIZINE HYDROCHLORIDE
     Dosage: 20 MG, QD
     Route: 048
  31. CETIRIZINE [Suspect]
     Active Substance: CETIRIZINE HYDROCHLORIDE
     Route: 065
  32. CETIRIZINE [Suspect]
     Active Substance: CETIRIZINE HYDROCHLORIDE
     Route: 065
  33. CETIRIZINE [Suspect]
     Active Substance: CETIRIZINE HYDROCHLORIDE
     Route: 048
  34. CETIRIZINE [Suspect]
     Active Substance: CETIRIZINE HYDROCHLORIDE
     Route: 065
  35. CETIRIZINE [Suspect]
     Active Substance: CETIRIZINE HYDROCHLORIDE
     Route: 065
  36. CETIRIZINE [Suspect]
     Active Substance: CETIRIZINE HYDROCHLORIDE
     Route: 048
  37. CETIRIZINE [Suspect]
     Active Substance: CETIRIZINE HYDROCHLORIDE
     Route: 048
  38. CETIRIZINE [Suspect]
     Active Substance: CETIRIZINE HYDROCHLORIDE
     Route: 065
  39. CETIRIZINE [Suspect]
     Active Substance: CETIRIZINE HYDROCHLORIDE
     Route: 065
  40. CETIRIZINE [Suspect]
     Active Substance: CETIRIZINE HYDROCHLORIDE
     Route: 065
  41. CETIRIZINE [Suspect]
     Active Substance: CETIRIZINE HYDROCHLORIDE
     Route: 065
  42. CORTISONE [Suspect]
     Active Substance: CORTISONE
     Indication: Rheumatoid arthritis
     Route: 016
  43. COSENTYX [Suspect]
     Active Substance: SECUKINUMAB
     Indication: Psoriatic arthropathy
     Route: 065
  44. DEXAMETHASONE [Suspect]
     Active Substance: DEXAMETHASONE
     Dosage: 1 G, BID  (2/DAYS)
     Route: 065
  45. DEXAMETHASONE [Suspect]
     Active Substance: DEXAMETHASONE
     Route: 065
  46. DEXAMETHASONE [Suspect]
     Active Substance: DEXAMETHASONE
     Dosage: 15 MG, QD
     Route: 048
  47. DEXAMETHASONE [Suspect]
     Active Substance: DEXAMETHASONE
     Dosage: 15 MG, QD
     Route: 048
  48. DEXAMETHASONE [Suspect]
     Active Substance: DEXAMETHASONE
     Indication: Rheumatoid arthritis
     Dosage: 2 G, QD
     Route: 065
  49. DEXAMETHASONE [Suspect]
     Active Substance: DEXAMETHASONE
     Dosage: 2 G, QD
     Route: 065
  50. DEXAMETHASONE [Suspect]
     Active Substance: DEXAMETHASONE
     Route: 065
  51. DEXAMETHASONE [Suspect]
     Active Substance: DEXAMETHASONE
     Route: 065
  52. DEXAMETHASONE [Suspect]
     Active Substance: DEXAMETHASONE
     Indication: Product used for unknown indication
     Dosage: 25 MG, QD
     Route: 048
  53. DEXAMETHASONE [Suspect]
     Active Substance: DEXAMETHASONE
     Dosage: 25 MG, QD
     Route: 048
  54. DEXAMETHASONE [Suspect]
     Active Substance: DEXAMETHASONE
     Route: 016
  55. DEXAMETHASONE [Suspect]
     Active Substance: DEXAMETHASONE
     Route: 048
  56. DEXAMETHASONE [Suspect]
     Active Substance: DEXAMETHASONE
     Route: 048
  57. DEXAMETHASONE [Suspect]
     Active Substance: DEXAMETHASONE
     Route: 048
  58. DEXAMETHASONE [Suspect]
     Active Substance: DEXAMETHASONE
     Route: 048
  59. DEXAMETHASONE [Suspect]
     Active Substance: DEXAMETHASONE
     Route: 065
  60. DICLOFENAC [Suspect]
     Active Substance: DICLOFENAC
     Indication: Product used for unknown indication
     Route: 065
  61. DICLOFENAC [Suspect]
     Active Substance: DICLOFENAC
     Route: 065
  62. DICLOFENAC [Suspect]
     Active Substance: DICLOFENAC
     Route: 065
  63. DICLOFENAC [Suspect]
     Active Substance: DICLOFENAC
     Route: 065
  64. DICLOFENAC [Suspect]
     Active Substance: DICLOFENAC
     Route: 065
  65. DICLOFENAC DIETHYLAMINE [Suspect]
     Active Substance: DICLOFENAC DIETHYLAMINE
     Route: 048
  66. DICLOFENAC DIETHYLAMINE [Suspect]
     Active Substance: DICLOFENAC DIETHYLAMINE
     Route: 048
  67. DICLOFENAC DIETHYLAMINE [Suspect]
     Active Substance: DICLOFENAC DIETHYLAMINE
     Route: 065
  68. DICLOFENAC DIETHYLAMINE [Suspect]
     Active Substance: DICLOFENAC DIETHYLAMINE
     Route: 065
  69. DICLOFENAC DIETHYLAMINE [Suspect]
     Active Substance: DICLOFENAC DIETHYLAMINE
     Indication: Product used for unknown indication
     Route: 003
  70. DICLOFENAC DIETHYLAMINE [Suspect]
     Active Substance: DICLOFENAC DIETHYLAMINE
     Route: 065
  71. DICLOFENAC DIETHYLAMINE [Suspect]
     Active Substance: DICLOFENAC DIETHYLAMINE
     Route: 065
  72. DICLOFENAC DIETHYLAMINE [Suspect]
     Active Substance: DICLOFENAC DIETHYLAMINE
     Route: 065
  73. DICLOFENAC POTASSIUM [Suspect]
     Active Substance: DICLOFENAC POTASSIUM
     Route: 048
  74. DICLOFENAC POTASSIUM [Suspect]
     Active Substance: DICLOFENAC POTASSIUM
     Route: 065
  75. DICLOFENAC POTASSIUM [Suspect]
     Active Substance: DICLOFENAC POTASSIUM
     Indication: Product used for unknown indication
     Route: 047
  76. DICLOFENAC POTASSIUM [Suspect]
     Active Substance: DICLOFENAC POTASSIUM
     Route: 065
  77. ERELZI [Suspect]
     Active Substance: ETANERCEPT-SZZS
     Route: 065
  78. ERELZI [Suspect]
     Active Substance: ETANERCEPT-SZZS
     Route: 065
  79. ERELZI [Suspect]
     Active Substance: ETANERCEPT-SZZS
     Route: 059
  80. ERELZI [Suspect]
     Active Substance: ETANERCEPT-SZZS
     Route: 058
  81. ERELZI [Suspect]
     Active Substance: ETANERCEPT-SZZS
     Indication: Rheumatoid arthritis
     Route: 065
  82. ETANERCEPT [Suspect]
     Active Substance: ETANERCEPT
     Dosage: 50 MG, QW
     Route: 058
  83. ETANERCEPT [Suspect]
     Active Substance: ETANERCEPT
     Indication: Rheumatoid arthritis
     Route: 058
  84. FOLIC ACID [Suspect]
     Active Substance: FOLIC ACID
     Route: 065
  85. FOLIC ACID [Suspect]
     Active Substance: FOLIC ACID
     Route: 065
  86. FOLIC ACID [Suspect]
     Active Substance: FOLIC ACID
     Route: 048
  87. FOLIC ACID [Suspect]
     Active Substance: FOLIC ACID
     Route: 058
  88. FOLIC ACID [Suspect]
     Active Substance: FOLIC ACID
     Route: 065
  89. FOLIC ACID [Suspect]
     Active Substance: FOLIC ACID
     Route: 065
  90. FOLIC ACID [Suspect]
     Active Substance: FOLIC ACID
     Route: 065
  91. FOLIC ACID [Suspect]
     Active Substance: FOLIC ACID
     Route: 065
  92. FOLIC ACID [Suspect]
     Active Substance: FOLIC ACID
     Route: 065
  93. FOLIC ACID [Suspect]
     Active Substance: FOLIC ACID
     Route: 048
  94. FOLIC ACID [Suspect]
     Active Substance: FOLIC ACID
     Route: 048
  95. FOLIC ACID [Suspect]
     Active Substance: FOLIC ACID
     Route: 048
  96. FOLIC ACID [Suspect]
     Active Substance: FOLIC ACID
     Route: 065
  97. FOLIC ACID [Suspect]
     Active Substance: FOLIC ACID
     Route: 065
  98. FOLIC ACID [Suspect]
     Active Substance: FOLIC ACID
     Indication: Rheumatoid arthritis
     Route: 048
  99. FOLIC ACID [Suspect]
     Active Substance: FOLIC ACID
     Route: 048
  100. FOLIC ACID [Suspect]
     Active Substance: FOLIC ACID
     Route: 048
  101. FOLIC ACID [Suspect]
     Active Substance: FOLIC ACID
     Route: 065
  102. FOLIC ACID [Suspect]
     Active Substance: FOLIC ACID
     Route: 065
  103. FOLIC ACID [Suspect]
     Active Substance: FOLIC ACID
     Route: 065
  104. FOLIC ACID [Suspect]
     Active Substance: FOLIC ACID
     Route: 065
  105. FOLIC ACID [Suspect]
     Active Substance: FOLIC ACID
     Dosage: 5 MG, QD
     Route: 065
  106. FOLIC ACID [Suspect]
     Active Substance: FOLIC ACID
     Route: 048
  107. FOLIC ACID [Suspect]
     Active Substance: FOLIC ACID
     Route: 065
  108. FOLIC ACID [Suspect]
     Active Substance: FOLIC ACID
     Route: 065
  109. FOLIC ACID [Suspect]
     Active Substance: FOLIC ACID
     Route: 065
  110. FOLIC ACID [Suspect]
     Active Substance: FOLIC ACID
     Route: 065
  111. FOLIC ACID [Suspect]
     Active Substance: FOLIC ACID
     Route: 065
  112. FOLIC ACID [Suspect]
     Active Substance: FOLIC ACID
     Route: 065
  113. FOLIC ACID [Suspect]
     Active Substance: FOLIC ACID
     Route: 048
  114. FOLIC ACID [Suspect]
     Active Substance: FOLIC ACID
     Route: 065
  115. FOLIC ACID [Suspect]
     Active Substance: FOLIC ACID
     Route: 048
  116. FOLIC ACID [Suspect]
     Active Substance: FOLIC ACID
     Route: 065
  117. FOLIC ACID [Suspect]
     Active Substance: FOLIC ACID
     Route: 058
  118. FOLIC ACID [Suspect]
     Active Substance: FOLIC ACID
     Route: 065
  119. FOLIC ACID [Suspect]
     Active Substance: FOLIC ACID
     Route: 065
  120. FOLIC ACID [Suspect]
     Active Substance: FOLIC ACID
     Route: 065
  121. HYDROCORTISONE ACETATE [Suspect]
     Active Substance: HYDROCORTISONE ACETATE
     Indication: Rheumatoid arthritis
     Route: 016
  122. HYDROCORTISONE ACETATE [Suspect]
     Active Substance: HYDROCORTISONE ACETATE
     Route: 048
  123. HYDROCORTISONE ACETATE [Suspect]
     Active Substance: HYDROCORTISONE ACETATE
     Route: 048
  124. HYDROCORTISONE ACETATE [Suspect]
     Active Substance: HYDROCORTISONE ACETATE
     Route: 065
  125. HYDROCORTISONE ACETATE [Suspect]
     Active Substance: HYDROCORTISONE ACETATE
     Route: 003
  126. HYDROCORTISONE ACETATE [Suspect]
     Active Substance: HYDROCORTISONE ACETATE
     Route: 003
  127. HYDROCORTISONE ACETATE [Suspect]
     Active Substance: HYDROCORTISONE ACETATE
     Route: 048
  128. HYDROCORTISONE ACETATE [Suspect]
     Active Substance: HYDROCORTISONE ACETATE
     Route: 058
  129. HYDROCORTISONE ACETATE [Suspect]
     Active Substance: HYDROCORTISONE ACETATE
     Route: 058
  130. HYDROCORTISONE ACETATE [Suspect]
     Active Substance: HYDROCORTISONE ACETATE
     Route: 065
  131. HYDROCORTISONE ACETATE [Suspect]
     Active Substance: HYDROCORTISONE ACETATE
     Route: 065
  132. HYRIMOZ [Suspect]
     Active Substance: ADALIMUMAB-ADAZ
     Route: 058
  133. HYRIMOZ [Suspect]
     Active Substance: ADALIMUMAB-ADAZ
     Route: 058
  134. HYRIMOZ [Suspect]
     Active Substance: ADALIMUMAB-ADAZ
     Indication: Rheumatoid arthritis
     Route: 059
  135. HYRIMOZ [Suspect]
     Active Substance: ADALIMUMAB-ADAZ
     Route: 059
  136. HUMAN IMMUNOGLOBULIN G [Suspect]
     Active Substance: HUMAN IMMUNOGLOBULIN G
     Route: 058
  137. HUMAN IMMUNOGLOBULIN G [Suspect]
     Active Substance: HUMAN IMMUNOGLOBULIN G
     Route: 058
  138. HUMAN IMMUNOGLOBULIN G [Suspect]
     Active Substance: HUMAN IMMUNOGLOBULIN G
     Dosage: 40 MG, QW
     Route: 058
  139. HUMAN IMMUNOGLOBULIN G [Suspect]
     Active Substance: HUMAN IMMUNOGLOBULIN G
     Dosage: 40 MG, Q2W
     Route: 058
  140. HUMAN IMMUNOGLOBULIN G [Suspect]
     Active Substance: HUMAN IMMUNOGLOBULIN G
     Route: 048
  141. HUMAN IMMUNOGLOBULIN G [Suspect]
     Active Substance: HUMAN IMMUNOGLOBULIN G
     Indication: Product used for unknown indication
     Route: 058
  142. HUMAN IMMUNOGLOBULIN G [Suspect]
     Active Substance: HUMAN IMMUNOGLOBULIN G
     Route: 058
  143. HUMAN IMMUNOGLOBULIN G [Suspect]
     Active Substance: HUMAN IMMUNOGLOBULIN G
     Route: 065
  144. HUMAN IMMUNOGLOBULIN G [Suspect]
     Active Substance: HUMAN IMMUNOGLOBULIN G
     Route: 065
  145. HUMAN IMMUNOGLOBULIN G [Suspect]
     Active Substance: HUMAN IMMUNOGLOBULIN G
     Route: 048
  146. HUMAN IMMUNOGLOBULIN G [Suspect]
     Active Substance: HUMAN IMMUNOGLOBULIN G
     Route: 065
  147. HUMAN IMMUNOGLOBULIN G [Suspect]
     Active Substance: HUMAN IMMUNOGLOBULIN G
     Route: 065
  148. HUMAN IMMUNOGLOBULIN G [Suspect]
     Active Substance: HUMAN IMMUNOGLOBULIN G
     Route: 065
  149. HUMAN IMMUNOGLOBULIN G [Suspect]
     Active Substance: HUMAN IMMUNOGLOBULIN G
     Route: 058
  150. HUMAN IMMUNOGLOBULIN G [Suspect]
     Active Substance: HUMAN IMMUNOGLOBULIN G
     Dosage: 40 MG, QW
     Route: 058
  151. HUMAN IMMUNOGLOBULIN G [Suspect]
     Active Substance: HUMAN IMMUNOGLOBULIN G
     Route: 048
  152. HUMAN IMMUNOGLOBULIN G [Suspect]
     Active Substance: HUMAN IMMUNOGLOBULIN G
     Indication: Product used for unknown indication
     Route: 058
  153. HUMAN IMMUNOGLOBULIN G [Suspect]
     Active Substance: HUMAN IMMUNOGLOBULIN G
     Route: 058
  154. HUMAN IMMUNOGLOBULIN G [Suspect]
     Active Substance: HUMAN IMMUNOGLOBULIN G
     Route: 058
  155. HUMAN IMMUNOGLOBULIN G [Suspect]
     Active Substance: HUMAN IMMUNOGLOBULIN G
     Route: 048
  156. HUMAN IMMUNOGLOBULIN G [Suspect]
     Active Substance: HUMAN IMMUNOGLOBULIN G
     Route: 065
  157. LEFLUNOMIDE [Suspect]
     Active Substance: LEFLUNOMIDE
     Route: 048
  158. LEFLUNOMIDE [Suspect]
     Active Substance: LEFLUNOMIDE
     Route: 048
  159. LEFLUNOMIDE [Suspect]
     Active Substance: LEFLUNOMIDE
     Route: 065
  160. LEFLUNOMIDE [Suspect]
     Active Substance: LEFLUNOMIDE
     Route: 065
  161. LEFLUNOMIDE [Suspect]
     Active Substance: LEFLUNOMIDE
     Route: 065
  162. LEFLUNOMIDE [Suspect]
     Active Substance: LEFLUNOMIDE
     Route: 048
  163. LEFLUNOMIDE [Suspect]
     Active Substance: LEFLUNOMIDE
     Dosage: 20 MG, (1 EVERY 1 DAYS)
     Route: 048
  164. LEFLUNOMIDE [Suspect]
     Active Substance: LEFLUNOMIDE
     Dosage: 20 MG, (1 EVERY 1 DAYS)
     Route: 065
  165. LEFLUNOMIDE [Suspect]
     Active Substance: LEFLUNOMIDE
     Route: 065
  166. LEFLUNOMIDE [Suspect]
     Active Substance: LEFLUNOMIDE
     Indication: Rheumatoid arthritis
     Dosage: 25 MG
     Route: 048
  167. LEFLUNOMIDE [Suspect]
     Active Substance: LEFLUNOMIDE
     Route: 048
  168. LEFLUNOMIDE [Suspect]
     Active Substance: LEFLUNOMIDE
     Route: 048
  169. LEFLUNOMIDE [Suspect]
     Active Substance: LEFLUNOMIDE
     Route: 048
  170. LEFLUNOMIDE [Suspect]
     Active Substance: LEFLUNOMIDE
     Route: 065
  171. LEFLUNOMIDE [Suspect]
     Active Substance: LEFLUNOMIDE
     Route: 065
  172. LEFLUNOMIDE [Suspect]
     Active Substance: LEFLUNOMIDE
     Route: 048
  173. LEFLUNOMIDE [Suspect]
     Active Substance: LEFLUNOMIDE
     Route: 065
  174. LEFLUNOMIDE [Suspect]
     Active Substance: LEFLUNOMIDE
     Route: 065
  175. LEVOCETIRIZINE DIHYDROCHLORIDE [Suspect]
     Active Substance: LEVOCETIRIZINE DIHYDROCHLORIDE
     Dosage: 10 MG, Q24H
     Route: 048
  176. LEVOCETIRIZINE DIHYDROCHLORIDE [Suspect]
     Active Substance: LEVOCETIRIZINE DIHYDROCHLORIDE
     Route: 016
  177. LEVOCETIRIZINE DIHYDROCHLORIDE [Suspect]
     Active Substance: LEVOCETIRIZINE DIHYDROCHLORIDE
     Route: 048
  178. LEVOCETIRIZINE DIHYDROCHLORIDE [Suspect]
     Active Substance: LEVOCETIRIZINE DIHYDROCHLORIDE
     Route: 065
  179. LEVOCETIRIZINE DIHYDROCHLORIDE [Suspect]
     Active Substance: LEVOCETIRIZINE DIHYDROCHLORIDE
     Route: 005
  180. LEVOCETIRIZINE DIHYDROCHLORIDE [Suspect]
     Active Substance: LEVOCETIRIZINE DIHYDROCHLORIDE
     Route: 065
  181. LEVOCETIRIZINE DIHYDROCHLORIDE [Suspect]
     Active Substance: LEVOCETIRIZINE DIHYDROCHLORIDE
     Indication: Rheumatoid arthritis
     Route: 058
  182. LEVOCETIRIZINE DIHYDROCHLORIDE [Suspect]
     Active Substance: LEVOCETIRIZINE DIHYDROCHLORIDE
     Route: 058
  183. LEVOCETIRIZINE DIHYDROCHLORIDE [Suspect]
     Active Substance: LEVOCETIRIZINE DIHYDROCHLORIDE
     Route: 065
  184. LEVOCETIRIZINE DIHYDROCHLORIDE [Suspect]
     Active Substance: LEVOCETIRIZINE DIHYDROCHLORIDE
     Route: 065
  185. LEVOCETIRIZINE HYDROCHLORIDE [Suspect]
     Active Substance: LEVOCETIRIZINE HYDROCHLORIDE
     Route: 041
  186. LEVOCETIRIZINE HYDROCHLORIDE [Suspect]
     Active Substance: LEVOCETIRIZINE HYDROCHLORIDE
     Indication: Product used for unknown indication
     Route: 042
  187. LEVOCETIRIZINE HYDROCHLORIDE [Suspect]
     Active Substance: LEVOCETIRIZINE HYDROCHLORIDE
     Route: 042
  188. LEVOCETIRIZINE HYDROCHLORIDE [Suspect]
     Active Substance: LEVOCETIRIZINE HYDROCHLORIDE
     Route: 042
  189. LEVOCETIRIZINE HYDROCHLORIDE [Suspect]
     Active Substance: LEVOCETIRIZINE HYDROCHLORIDE
     Route: 058
  190. LEVOCETIRIZINE HYDROCHLORIDE [Suspect]
     Active Substance: LEVOCETIRIZINE HYDROCHLORIDE
     Route: 058
  191. METHOTREXATE [Suspect]
     Active Substance: METHOTREXATE
     Route: 065
  192. METHOTREXATE [Suspect]
     Active Substance: METHOTREXATE
     Route: 065
  193. METHOTREXATE [Suspect]
     Active Substance: METHOTREXATE
     Route: 065
  194. METHOTREXATE [Suspect]
     Active Substance: METHOTREXATE
     Route: 065
  195. METHOTREXATE [Suspect]
     Active Substance: METHOTREXATE
     Route: 065
  196. METHOTREXATE [Suspect]
     Active Substance: METHOTREXATE
     Route: 048
  197. METHOTREXATE [Suspect]
     Active Substance: METHOTREXATE
     Route: 058
  198. METHOTREXATE [Suspect]
     Active Substance: METHOTREXATE
     Route: 065
  199. METHOTREXATE [Suspect]
     Active Substance: METHOTREXATE
     Dosage: 1 DOSAGE FORM, QD
     Route: 048
  200. METHOTREXATE [Suspect]
     Active Substance: METHOTREXATE
     Route: 048
  201. METHOTREXATE [Suspect]
     Active Substance: METHOTREXATE
     Indication: Rheumatoid arthritis
     Dosage: 10 MG, Q24H
     Route: 048
  202. METHOTREXATE [Suspect]
     Active Substance: METHOTREXATE
     Dosage: 10 MG, Q24H
     Route: 048
  203. METHOTREXATE [Suspect]
     Active Substance: METHOTREXATE
     Dosage: 15 MG, QD
     Route: 048
  204. METHOTREXATE [Suspect]
     Active Substance: METHOTREXATE
     Dosage: 15 MG, QD
     Route: 048
  205. METHOTREXATE [Suspect]
     Active Substance: METHOTREXATE
     Dosage: 15 MG, QD
     Route: 065
  206. METHOTREXATE [Suspect]
     Active Substance: METHOTREXATE
     Route: 048
  207. METHOTREXATE [Suspect]
     Active Substance: METHOTREXATE
     Route: 065
  208. METHOTREXATE [Suspect]
     Active Substance: METHOTREXATE
     Route: 048
  209. METHOTREXATE [Suspect]
     Active Substance: METHOTREXATE
     Route: 048
  210. METHOTREXATE [Suspect]
     Active Substance: METHOTREXATE
     Route: 058
  211. METHOTREXATE [Suspect]
     Active Substance: METHOTREXATE
     Dosage: 20 MG, QW
     Route: 065
  212. METHOTREXATE [Suspect]
     Active Substance: METHOTREXATE
     Dosage: 20 MG, QD (1 EVERY 1 DAYS)
     Route: 048
  213. METHOTREXATE [Suspect]
     Active Substance: METHOTREXATE
     Dosage: 20 MG, QD
     Route: 048
  214. METHOTREXATE [Suspect]
     Active Substance: METHOTREXATE
     Dosage: 20 MG, QD
     Route: 048
  215. METHOTREXATE [Suspect]
     Active Substance: METHOTREXATE
     Dosage: 20 MG, QD
     Route: 065
  216. METHOTREXATE [Suspect]
     Active Substance: METHOTREXATE
     Dosage: 20 MG, QD
     Route: 065
  217. METHOTREXATE [Suspect]
     Active Substance: METHOTREXATE
     Route: 065
  218. METHOTREXATE [Suspect]
     Active Substance: METHOTREXATE
     Route: 048
  219. METHOTREXATE [Suspect]
     Active Substance: METHOTREXATE
     Route: 048
  220. METHOTREXATE [Suspect]
     Active Substance: METHOTREXATE
     Dosage: 25 G, QW
     Route: 048
  221. METHOTREXATE [Suspect]
     Active Substance: METHOTREXATE
     Route: 048
  222. METHOTREXATE [Suspect]
     Active Substance: METHOTREXATE
     Dosage: 25 MG, QW
     Route: 013
  223. METHOTREXATE [Suspect]
     Active Substance: METHOTREXATE
     Dosage: 25 MG, QW
     Route: 013
  224. METHOTREXATE [Suspect]
     Active Substance: METHOTREXATE
     Dosage: 25 MG, QW
     Route: 058
  225. METHOTREXATE [Suspect]
     Active Substance: METHOTREXATE
     Dosage: 25 MG, QW
     Route: 058
  226. METHOTREXATE [Suspect]
     Active Substance: METHOTREXATE
     Dosage: 25 MG, QW
     Route: 065
  227. METHOTREXATE [Suspect]
     Active Substance: METHOTREXATE
     Dosage: 25 MG, QD
     Route: 013
  228. METHOTREXATE [Suspect]
     Active Substance: METHOTREXATE
     Dosage: 25 MG, QD
     Route: 013
  229. METHOTREXATE [Suspect]
     Active Substance: METHOTREXATE
     Dosage: 25 MG, QD
     Route: 048
  230. METHOTREXATE [Suspect]
     Active Substance: METHOTREXATE
     Dosage: 25 MG, QD
     Route: 048
  231. METHOTREXATE [Suspect]
     Active Substance: METHOTREXATE
     Dosage: 25 MG, QD
     Route: 058
  232. METHOTREXATE [Suspect]
     Active Substance: METHOTREXATE
     Route: 005
  233. METHOTREXATE [Suspect]
     Active Substance: METHOTREXATE
     Route: 005
  234. METHOTREXATE [Suspect]
     Active Substance: METHOTREXATE
     Route: 013
  235. METHOTREXATE [Suspect]
     Active Substance: METHOTREXATE
     Route: 048
  236. METHOTREXATE [Suspect]
     Active Substance: METHOTREXATE
     Route: 048
  237. METHOTREXATE [Suspect]
     Active Substance: METHOTREXATE
     Route: 048
  238. METHOTREXATE [Suspect]
     Active Substance: METHOTREXATE
     Route: 048
  239. METHOTREXATE [Suspect]
     Active Substance: METHOTREXATE
     Route: 058
  240. METHOTREXATE [Suspect]
     Active Substance: METHOTREXATE
     Route: 065
  241. METHOTREXATE [Suspect]
     Active Substance: METHOTREXATE
     Route: 065
  242. METHOTREXATE [Suspect]
     Active Substance: METHOTREXATE
     Route: 065
  243. METHOTREXATE [Suspect]
     Active Substance: METHOTREXATE
     Route: 065
  244. METHOTREXATE [Suspect]
     Active Substance: METHOTREXATE
     Route: 065
  245. METHOTREXATE [Suspect]
     Active Substance: METHOTREXATE
     Route: 065
  246. METHOTREXATE [Suspect]
     Active Substance: METHOTREXATE
     Indication: Rheumatoid arthritis
     Dosage: 50 MG, QW
     Route: 058
  247. METHOTREXATE [Suspect]
     Active Substance: METHOTREXATE
     Dosage: 50 MG, QW
     Route: 058
  248. METHOTREXATE [Suspect]
     Active Substance: METHOTREXATE
     Dosage: 50 MG, QW
     Route: 065
  249. METHOTREXATE [Suspect]
     Active Substance: METHOTREXATE
     Route: 065
  250. METHOTREXATE [Suspect]
     Active Substance: METHOTREXATE
     Route: 065
  251. METHOTREXATE [Suspect]
     Active Substance: METHOTREXATE
     Dosage: UNK, QD (1 EVERY 1 DAYS)
     Route: 065
  252. METHOTREXATE [Suspect]
     Active Substance: METHOTREXATE
     Route: 016
  253. METHOTREXATE [Suspect]
     Active Substance: METHOTREXATE
     Route: 048
  254. METHOTREXATE [Suspect]
     Active Substance: METHOTREXATE
     Route: 048
  255. METHOTREXATE [Suspect]
     Active Substance: METHOTREXATE
     Route: 058
  256. METHOTREXATE [Suspect]
     Active Substance: METHOTREXATE
     Route: 058
  257. METHOTREXATE [Suspect]
     Active Substance: METHOTREXATE
     Route: 058
  258. METHOTREXATE [Suspect]
     Active Substance: METHOTREXATE
     Route: 065
  259. METHOTREXATE [Suspect]
     Active Substance: METHOTREXATE
     Route: 065
  260. METHOTREXATE [Suspect]
     Active Substance: METHOTREXATE
     Route: 065
  261. METHOTREXATE [Suspect]
     Active Substance: METHOTREXATE
     Route: 065
  262. METHOTREXATE [Suspect]
     Active Substance: METHOTREXATE
     Route: 065
  263. METHOTREXATE [Suspect]
     Active Substance: METHOTREXATE
     Route: 065
  264. METHOTREXATE [Suspect]
     Active Substance: METHOTREXATE
     Route: 065
  265. OXYCODONE [Suspect]
     Active Substance: OXYCODONE
     Dosage: 15 MG, QD
     Route: 048
  266. OXYCODONE [Suspect]
     Active Substance: OXYCODONE
     Dosage: 20 MG, QW
     Route: 048
  267. OXYCODONE [Suspect]
     Active Substance: OXYCODONE
     Dosage: 20 MG, QW
     Route: 065
  268. OXYCODONE [Suspect]
     Active Substance: OXYCODONE
     Dosage: 20 MG, QD
     Route: 048
  269. OXYCODONE [Suspect]
     Active Substance: OXYCODONE
     Dosage: 20 MG, QD
     Route: 065
  270. OXYCODONE [Suspect]
     Active Substance: OXYCODONE
     Dosage: UNK, QD
     Route: 065
  271. OXYCODONE [Suspect]
     Active Substance: OXYCODONE
     Dosage: 225 MG
     Route: 048
  272. OXYCODONE [Suspect]
     Active Substance: OXYCODONE
     Dosage: 225 MG
     Route: 048
  273. OXYCODONE [Suspect]
     Active Substance: OXYCODONE
     Dosage: 25 MG, QW
     Route: 013
  274. OXYCODONE [Suspect]
     Active Substance: OXYCODONE
     Indication: Product used for unknown indication
     Dosage: 25 MG, QW
     Route: 058
  275. OXYCODONE [Suspect]
     Active Substance: OXYCODONE
     Dosage: 25 MG, QW
     Route: 058
  276. OXYCODONE [Suspect]
     Active Substance: OXYCODONE
     Dosage: 25 MG
     Route: 048
  277. OXYCODONE [Suspect]
     Active Substance: OXYCODONE
     Dosage: 25 MG
     Route: 048
  278. OXYCODONE [Suspect]
     Active Substance: OXYCODONE
     Dosage: 25 MG, QD
     Route: 048
  279. OXYCODONE [Suspect]
     Active Substance: OXYCODONE
     Route: 059
  280. OXYCODONE [Suspect]
     Active Substance: OXYCODONE
     Route: 059
  281. OXYCODONE [Suspect]
     Active Substance: OXYCODONE
     Route: 003
  282. PREGABALIN [Suspect]
     Active Substance: PREGABALIN
     Indication: Product used for unknown indication
     Route: 065
  283. PREGABALIN [Suspect]
     Active Substance: PREGABALIN
     Route: 065
  284. RITUXIMAB [Suspect]
     Active Substance: RITUXIMAB
     Indication: Rheumatoid arthritis
     Route: 048
  285. RITUXIMAB [Suspect]
     Active Substance: RITUXIMAB
     Route: 048
  286. RITUXIMAB [Suspect]
     Active Substance: RITUXIMAB
     Route: 048
  287. RITUXIMAB [Suspect]
     Active Substance: RITUXIMAB
     Route: 048
  288. RITUXIMAB [Suspect]
     Active Substance: RITUXIMAB
     Route: 041
  289. RITUXIMAB [Suspect]
     Active Substance: RITUXIMAB
     Route: 042
  290. RITUXIMAB [Suspect]
     Active Substance: RITUXIMAB
     Route: 042
  291. RITUXIMAB [Suspect]
     Active Substance: RITUXIMAB
     Route: 042
  292. RITUXIMAB [Suspect]
     Active Substance: RITUXIMAB
     Route: 042
  293. RITUXIMAB [Suspect]
     Active Substance: RITUXIMAB
     Route: 042
  294. RITUXIMAB [Suspect]
     Active Substance: RITUXIMAB
     Route: 042
  295. RITUXIMAB [Suspect]
     Active Substance: RITUXIMAB
     Route: 043
  296. RITUXIMAB [Suspect]
     Active Substance: RITUXIMAB
     Route: 058
  297. RITUXIMAB [Suspect]
     Active Substance: RITUXIMAB
     Route: 058
  298. RITUXIMAB [Suspect]
     Active Substance: RITUXIMAB
     Route: 065
  299. RITUXIMAB [Suspect]
     Active Substance: RITUXIMAB
     Route: 065
  300. MYCOPHENOLATE MOFETIL [Suspect]
     Active Substance: MYCOPHENOLATE MOFETIL
     Indication: Psoriatic arthropathy
     Route: 048
  301. MYCOPHENOLATE MOFETIL [Suspect]
     Active Substance: MYCOPHENOLATE MOFETIL
     Indication: Product used for unknown indication
     Route: 065
  302. TRIAMCINOLONE [Suspect]
     Active Substance: TRIAMCINOLONE
     Indication: Rheumatoid arthritis
     Route: 048
  303. TRIAMCINOLONE [Suspect]
     Active Substance: TRIAMCINOLONE
     Route: 065
  304. VOLTAREN [Suspect]
     Active Substance: DICLOFENAC SODIUM
     Route: 048
  305. VOLTAREN [Suspect]
     Active Substance: DICLOFENAC SODIUM
     Route: 048
  306. VOLTAREN [Suspect]
     Active Substance: DICLOFENAC SODIUM
     Route: 065
  307. VOLTAREN [Suspect]
     Active Substance: DICLOFENAC SODIUM
     Route: 065
  308. VOLTAREN [Suspect]
     Active Substance: DICLOFENAC SODIUM
     Route: 065
  309. VOLTAREN [Suspect]
     Active Substance: DICLOFENAC SODIUM
     Route: 048
  310. VOLTAREN [Suspect]
     Active Substance: DICLOFENAC SODIUM
     Route: 047
  311. VOLTAREN [Suspect]
     Active Substance: DICLOFENAC SODIUM
     Indication: Product used for unknown indication
     Route: 065
  312. VOLTAREN [Suspect]
     Active Substance: DICLOFENAC SODIUM
     Route: 065
  313. VOLTAREN [Suspect]
     Active Substance: DICLOFENAC SODIUM
     Route: 065
  314. VOLTAREN [Suspect]
     Active Substance: DICLOFENAC SODIUM
     Route: 065
  315. VOLTAREN [Suspect]
     Active Substance: DICLOFENAC SODIUM
     Indication: Product used for unknown indication
     Route: 047
  316. VOLTAREN [Suspect]
     Active Substance: DICLOFENAC SODIUM
     Route: 065
  317. VOLTAREN [Suspect]
     Active Substance: DICLOFENAC SODIUM
     Route: 065
  318. VOLTAREN [Suspect]
     Active Substance: DICLOFENAC SODIUM
     Route: 065
  319. VOLTAREN [Suspect]
     Active Substance: DICLOFENAC SODIUM
     Route: 003
  320. VOLTAREN [Suspect]
     Active Substance: DICLOFENAC SODIUM
     Route: 065
  321. Vigantol [Concomitant]
     Indication: Product used for unknown indication
     Route: 065
  322. VITAMIN D3 [Concomitant]
     Active Substance: CHOLECALCIFEROL
     Indication: Product used for unknown indication
     Route: 065

REACTIONS (16)
  - Immunodeficiency [Fatal]
  - Loss of consciousness [Fatal]
  - Adrenal insufficiency [Fatal]
  - Hypokalaemia [Fatal]
  - Polyarthritis [Fatal]
  - Pregnancy [Fatal]
  - Joint destruction [Fatal]
  - Drug tolerance [Fatal]
  - Exposure during pregnancy [Fatal]
  - Maternal exposure during pregnancy [Fatal]
  - Therapy non-responder [Fatal]
  - Therapeutic product effect decreased [Fatal]
  - Contraindicated product administered [Fatal]
  - Product use in unapproved indication [Fatal]
  - Intentional product use issue [Fatal]
  - Off label use [Fatal]
